FAERS Safety Report 5689631-9 (Version None)
Quarter: 2008Q1

REPORT INFORMATION
  Report Type: 
  Country: None (occurrence: None)
  Receive Date: 20080331
  Receipt Date: 20080324
  Transmission Date: 20080703
  Serious: Yes (Other)
  Sender: FDA-Public Use
  Company Number: US-BOEHRINGER INGELHEIM GMBH, GERMANY-2008-BP-04682PF

PATIENT
  Sex: Female
  Weight: 77 kg

DRUGS (5)
  1. SPIRIVA [Suspect]
     Indication: COUGH
     Dates: start: 20070101
  2. CHANTIX [Suspect]
     Indication: EX-SMOKER
     Dates: start: 20080303
  3. UNKNOWN BLOOD PRESSURE MEDICATION [Suspect]
     Indication: HYPERTENSION
  4. ZYRTEC [Concomitant]
     Indication: URTICARIA
  5. ZYRTEC [Concomitant]
     Indication: PRURITUS

REACTIONS (4)
  - ARTHRALGIA [None]
  - MIDDLE INSOMNIA [None]
  - SENSORY DISTURBANCE [None]
  - THROAT TIGHTNESS [None]
